FAERS Safety Report 25554148 (Version 1)
Quarter: 2025Q3

REPORT INFORMATION
  Report Type: Spontaneous
  Country: CN (occurrence: CN)
  Receive Date: 20250715
  Receipt Date: 20250715
  Transmission Date: 20251021
  Serious: Yes (Other)
  Sender: ALEXION PHARMACEUTICALS
  Company Number: CN-ASTRAZENECA-202507CHN005657CN

PATIENT
  Age: 61 Year
  Sex: Male
  Weight: 63 kg

DRUGS (2)
  1. BRILINTA [Suspect]
     Active Substance: TICAGRELOR
     Indication: Coronary artery stenosis
     Dosage: 90 MILLIGRAM, QD
     Dates: start: 20250626, end: 20250702
  2. ASPIRIN [Concomitant]
     Active Substance: ASPIRIN
     Indication: Coronary artery stenosis
     Dates: start: 20250626, end: 20250702

REACTIONS (2)
  - Haematuria [Unknown]
  - Protein urine present [Unknown]

NARRATIVE: CASE EVENT DATE: 20250702
